FAERS Safety Report 6156393-0 (Version None)
Quarter: 2009Q2

REPORT INFORMATION
  Report Type: 
  Country: None (occurrence: None)
  Receive Date: 20090416
  Receipt Date: 20090406
  Transmission Date: 20091009
  Serious: Yes (Death)
  Sender: FDA-Public Use
  Company Number: US-RANBAXY-2009RR-20633

PATIENT
  Age: 40 Year
  Sex: Female

DRUGS (6)
  1. OXYCODONE HCL [Suspect]
  2. CARISOPRODOL [Suspect]
  3. PROPRANOLOL [Suspect]
  4. CITALOPRAM HYDROBROMIDE [Suspect]
  5. QUETIAPINE FUMARATE [Suspect]
  6. FLUOXETINE [Suspect]

REACTIONS (2)
  - COMPLETED SUICIDE [None]
  - MULTIPLE DRUG OVERDOSE INTENTIONAL [None]
